FAERS Safety Report 24948115 (Version 1)
Quarter: 2025Q1

REPORT INFORMATION
  Report Type: Spontaneous
  Country: GB (occurrence: GB)
  Receive Date: 20250210
  Receipt Date: 20250210
  Transmission Date: 20250409
  Serious: No
  Sender: ALKEM
  Company Number: None

PATIENT
  Age: 88 Year
  Sex: Male
  Weight: 61 kg

DRUGS (17)
  1. EZETIMIBE [Suspect]
     Active Substance: EZETIMIBE
     Indication: Ill-defined disorder
     Route: 065
     Dates: start: 20240125
  2. ASPIRIN [Concomitant]
     Active Substance: ASPIRIN
     Indication: Ill-defined disorder
     Dosage: 1 DOSAGE FORM QD (TAKE ONE TABLET DAILY TO HELP PREVENT A HEART A)
     Route: 065
     Dates: start: 20221205
  3. DICLOFENAC DIETHYLAMINE [Concomitant]
     Active Substance: DICLOFENAC DIETHYLAMINE
     Indication: Ill-defined disorder
     Dosage: UNK, TID (APPLY 3 TIMES/DAY)
     Route: 065
     Dates: start: 20221205
  4. EZETIMIBE [Concomitant]
     Active Substance: EZETIMIBE
     Indication: Blood cholesterol
     Dosage: 1 DOSAGE FORM, OD (ONE TABLET TO BE TAKEN ONCE A DAY FOR CHOLESTEROL )
     Route: 065
     Dates: start: 20231214, end: 20240125
  5. POTASSIUM BICARBONATE\SODIUM ALGINATE [Concomitant]
     Active Substance: POTASSIUM BICARBONATE\SODIUM ALGINATE
     Indication: Ill-defined disorder
     Dosage: UNK, QID (5ML - 10ML 4 TIMES/DAY)
     Route: 065
     Dates: start: 20221205
  6. POLYETHYLENE GLYCOL 3350\POTASSIUM CHLORIDE\SODIUM BICARBONATE\SODIUM [Concomitant]
     Active Substance: POLYETHYLENE GLYCOL 3350\POTASSIUM CHLORIDE\SODIUM BICARBONATE\SODIUM CHLORIDE
     Indication: Ill-defined disorder
     Dosage: UNK, QD (1 EVERY DAY)
     Route: 065
     Dates: start: 20221205
  7. LOPERAMIDE [Concomitant]
     Active Substance: LOPERAMIDE
     Indication: Ill-defined disorder
     Dosage: UNK, BID (ONE, TWICE A DAY)
     Route: 065
     Dates: start: 20221205, end: 20231201
  8. LORATADINE [Concomitant]
     Active Substance: LORATADINE
     Indication: Ill-defined disorder
     Dosage: UNK, QD (TAKE ONE DAILY )
     Route: 065
     Dates: start: 20221205
  9. MIRTAZAPINE [Concomitant]
     Active Substance: MIRTAZAPINE
     Indication: Ill-defined disorder
     Dosage: 1 DOSAGE FORM, OD (ONE TABLET TO TAKE ONCE IN THE EVENING)
     Route: 065
     Dates: start: 20221205
  10. OMEPRAZOLE [Concomitant]
     Active Substance: OMEPRAZOLE
     Indication: Ill-defined disorder
     Dosage: UNK, QD (TAKE ONE DAILY TO REDUCE STOMACH ACID)
     Route: 065
     Dates: start: 20221205
  11. ACETAMINOPHEN [Concomitant]
     Active Substance: ACETAMINOPHEN
     Indication: Ill-defined disorder
     Dosage: UNK, QID (ONE TO TWO TO BE TAKEN FOUR TIMES DAILY AS REQU)
     Route: 065
     Dates: start: 20221205
  12. QVAR [Concomitant]
     Active Substance: BECLOMETHASONE DIPROPIONATE
     Indication: Ill-defined disorder
     Dosage: UNK, BID (INHALE 1 DOSE TWICE DAILY)
     Dates: start: 20230622
  13. ALBUTEROL [Concomitant]
     Active Substance: ALBUTEROL
     Indication: Asthma
     Dates: start: 20221205
  14. SOLIFENACIN [Concomitant]
     Active Substance: SOLIFENACIN
     Indication: Ill-defined disorder
     Dosage: 1 DOSAGE FORM, QD (ONE TABLET TO BE TAKEN DAILY TO TREAT BLADDER S)
     Route: 065
     Dates: start: 20231005
  15. TAMSULOSIN HYDROCHLORIDE [Concomitant]
     Active Substance: TAMSULOSIN HYDROCHLORIDE
     Indication: Ill-defined disorder
     Dosage: 1 DOSAGE FORM, OD (ONE CAPSULE TO BE TAKEN ONCE A DAY )
     Route: 065
     Dates: start: 20221205
  16. VISTA-METHASONE [Concomitant]
     Indication: Ill-defined disorder
     Dosage: UNK, BID (TWO DROPS, TWICE DAILY IN BOTH NOSTRILS)
     Route: 065
     Dates: start: 20221205
  17. ZOPICLONE [Concomitant]
     Active Substance: ZOPICLONE
     Indication: Ill-defined disorder
     Route: 065
     Dates: start: 20221205

REACTIONS (2)
  - Asthenia [Recovering/Resolving]
  - Gastrooesophageal reflux disease [Recovered/Resolved]

NARRATIVE: CASE EVENT DATE: 20240125
